FAERS Safety Report 11170740 (Version 3)
Quarter: 2015Q3

REPORT INFORMATION
  Report Type: Spontaneous
  Country: FI (occurrence: FI)
  Receive Date: 20150608
  Receipt Date: 20150827
  Transmission Date: 20151125
  Serious: Yes (Other)
  Sender: FDA-Public Use
  Company Number: FI-BAYER-2015-299266

PATIENT
  Age: 40 Year
  Sex: Female

DRUGS (1)
  1. MIRENA [Suspect]
     Active Substance: LEVONORGESTREL
     Indication: MENORRHAGIA
     Dosage: 20 MCG/24HR, CONT
     Route: 015
     Dates: start: 2011, end: 2011

REACTIONS (10)
  - Cough [Unknown]
  - Pyrexia [Unknown]
  - Hypersensitivity [Unknown]
  - Vomiting [Unknown]
  - Abdominal pain upper [Unknown]
  - Back pain [Unknown]
  - Swelling [Unknown]
  - Choking sensation [Unknown]
  - Eczema [Unknown]
  - Dermatitis allergic [Unknown]

NARRATIVE: CASE EVENT DATE: 2011
